FAERS Safety Report 22038631 (Version 3)
Quarter: 2023Q2

REPORT INFORMATION
  Report Type: Spontaneous
  Country: CA (occurrence: None)
  Receive Date: 20230227
  Receipt Date: 20230614
  Transmission Date: 20230722
  Serious: Yes (Other)
  Sender: FDA-Public Use
  Company Number: CA-PFIZER INC-PV202300035102

PATIENT
  Age: 51 Year
  Sex: Male
  Weight: 150 kg

DRUGS (4)
  1. METHOTREXATE [Suspect]
     Active Substance: METHOTREXATE
     Indication: Crohn^s disease
     Dates: start: 20230228
  2. SYNTHROID [Concomitant]
     Active Substance: LEVOTHYROXINE SODIUM
     Indication: Hypothyroidism
     Dosage: ONGOING
  3. PREDNISONE [Concomitant]
     Active Substance: PREDNISONE
     Dosage: MULTIPLE COURSES
  4. ASACOL [Concomitant]
     Active Substance: MESALAMINE

REACTIONS (7)
  - Crohn^s disease [Unknown]
  - Rectal haemorrhage [Unknown]
  - Drug ineffective for unapproved indication [Unknown]
  - Product use in unapproved indication [Unknown]
  - Abdominal pain lower [Unknown]
  - Abnormal loss of weight [Unknown]
  - Arthralgia [Unknown]

NARRATIVE: CASE EVENT DATE: 20230501
